FAERS Safety Report 9149379 (Version 2)
Quarter: 2013Q1

REPORT INFORMATION
  Report Type: Report from Study
  Country: US (occurrence: US)
  Receive Date: 20130308
  Receipt Date: 20130329
  Transmission Date: 20140127
  Serious: Yes (Other)
  Sender: FDA-Public Use
  Company Number: US-ABBOTT-13P-163-1057321-00

PATIENT
  Sex: Female
  Weight: 68.1 kg

DRUGS (7)
  1. LUPRON DEPOT [Suspect]
     Indication: ENDOMETRIOSIS
     Dosage: 1ST 6 MONTH COURSE
     Route: 030
     Dates: start: 1993
  2. LUPRON DEPOT [Suspect]
     Dosage: SECOND SIX MONTH COURSE
     Dates: start: 1998
  3. LUPRON DEPOT [Suspect]
     Dosage: THIRD COURSE
     Dates: start: 20130220
  4. COMPAZINE [Concomitant]
     Indication: NAUSEA
     Dosage: EVERY SIX HOURS
     Route: 048
  5. TYLENOL [Concomitant]
     Indication: PAIN
     Dosage: 325 MG 2 PILLS ONCE A DAY
     Route: 048
  6. ZYRTEC [Concomitant]
     Indication: EUSTACHIAN TUBE DISORDER
     Dosage: 10 MG DAILY
     Route: 048
     Dates: start: 2007
  7. SINGULAIR [Concomitant]
     Indication: EUSTACHIAN TUBE DISORDER
     Dosage: 10 MG DAILY
     Route: 048
     Dates: start: 2007

REACTIONS (7)
  - Cholecystectomy [Unknown]
  - Cervix haemorrhage uterine [Unknown]
  - Female sterilisation [Unknown]
  - Weight increased [Recovering/Resolving]
  - Nausea [Recovered/Resolved]
  - Headache [Recovered/Resolved]
  - Middle ear effusion [Unknown]
